FAERS Safety Report 9305959 (Version 1)
Quarter: 2013Q2

REPORT INFORMATION
  Report Type: Spontaneous
  Country: US (occurrence: US)
  Receive Date: 20130523
  Receipt Date: 20130523
  Transmission Date: 20140414
  Serious: No
  Sender: FDA-Public Use
  Company Number: US-TEVA-390874USA

PATIENT
  Age: 15 Year
  Sex: Female

DRUGS (1)
  1. PROGLYCEM SUSPENSION [Suspect]
     Dosage: 5 MG/ML DAILY;
     Dates: start: 201206

REACTIONS (3)
  - Lethargy [Unknown]
  - Fatigue [Unknown]
  - Headache [Unknown]
